FAERS Safety Report 20457521 (Version 1)
Quarter: 2022Q1

REPORT INFORMATION
  Report Type: Report from Study
  Country: US (occurrence: US)
  Receive Date: 20220210
  Receipt Date: 20220210
  Transmission Date: 20220423
  Serious: Yes (Other)
  Sender: FDA-Public Use
  Company Number: US-ABBVIE-22K-163-4269030-00

PATIENT
  Sex: Female

DRUGS (2)
  1. VENCLEXTA [Suspect]
     Active Substance: VENETOCLAX
     Indication: Chloroma
     Route: 048
  2. VENCLEXTA [Suspect]
     Active Substance: VENETOCLAX
     Dosage: 4 TABLETS OF 10 MG WITH ONE TABLET OF 50 MG?WITH FOOD AND FULL GLASS OF WATER
     Route: 048

REACTIONS (3)
  - Transplant [Unknown]
  - B-lymphocyte count decreased [Unknown]
  - Off label use [Unknown]
